FAERS Safety Report 8794875 (Version 2)
Quarter: 2015Q1

REPORT INFORMATION
  Report Type: Report from Study
  Country: US (occurrence: US)
  Receive Date: 20120918
  Receipt Date: 20150114
  Transmission Date: 20150721
  Serious: Yes (Death)
  Sender: FDA-Public Use
  Company Number: US-ROCHE-1122548

PATIENT
  Sex: Female

DRUGS (7)
  1. ALOXI [Concomitant]
     Active Substance: PALONOSETRON HYDROCHLORIDE
     Route: 042
  2. TEMODAR [Concomitant]
     Active Substance: TEMOZOLOMIDE
     Route: 065
  3. DECADRON [Concomitant]
     Active Substance: DEXAMETHASONE
     Route: 042
  4. AVASTIN [Suspect]
     Active Substance: BEVACIZUMAB
     Indication: MALIGNANT MELANOMA
     Route: 042
  5. CARBOPLATIN. [Concomitant]
     Active Substance: CARBOPLATIN
     Route: 042
  6. FERRLECIT (UNITED STATES) [Concomitant]
     Route: 042
  7. AVASTIN [Suspect]
     Active Substance: BEVACIZUMAB
     Route: 042

REACTIONS (5)
  - Vomiting [Unknown]
  - Fatigue [Unknown]
  - Nausea [Unknown]
  - Death [Fatal]
  - Pain [Unknown]
